FAERS Safety Report 7068070-2 (Version None)
Quarter: 2010Q4

REPORT INFORMATION
  Report Type: 
  Country: None (occurrence: None)
  Receive Date: 20101027
  Receipt Date: 20101027
  Transmission Date: 20110411
  Serious: Yes (Disabling)
  Sender: FDA-Public Use
  Company Number: None

PATIENT
  Age: 16 Year
  Sex: Male
  Weight: 73.9363 kg

DRUGS (1)
  1. RISPERDONE [Suspect]
     Indication: AFFECTIVE DISORDER
     Dates: start: 20090616, end: 20090830

REACTIONS (1)
  - PSYCHOTIC DISORDER [None]
